FAERS Safety Report 9200798 (Version 1)
Quarter: 2013Q1

REPORT INFORMATION
  Report Type: Spontaneous
  Country: IT (occurrence: None)
  Receive Date: 20130327
  Receipt Date: 20130327
  Transmission Date: 20140127
  Serious: Yes (Hospitalization)
  Sender: FDA-Public Use
  Company Number: 2013-05072

PATIENT
  Age: 81 Year
  Sex: Male

DRUGS (7)
  1. METFORMIN HYDROCHLORIDE [Suspect]
     Indication: DIABETES MELLITUS
     Route: 048
     Dates: start: 20100101, end: 20121227
  2. ASCRIPTIN (ACETYLSALICYLIC ACID, ALUMINIUM HYDROXIDE, MAGNESIUM HYDROXIDE) [Concomitant]
  3. CORDARONE (AMIODATRONE HYDROCHLORIDE) [Concomitant]
  4. NORVASC (AMLODIPINE BESILATE) [Concomitant]
  5. OLPREZIDE (HYDROCHLOROTHIAZIDE, OLMESARTAN MEDOXOMIL) [Concomitant]
  6. TOTALIP (ATORVASTATIN CALCIUM) [Concomitant]
  7. LANSOPRAZOLE (LANSOPRAZOLE) [Concomitant]

REACTIONS (3)
  - Renal failure acute [None]
  - Carbon dioxide decreased [None]
  - Blood bicarbonate decreased [None]
